FAERS Safety Report 11237478 (Version 1)
Quarter: 2015Q3

REPORT INFORMATION
  Report Type: Spontaneous
  Country: US (occurrence: US)
  Receive Date: 20150703
  Receipt Date: 20150703
  Transmission Date: 20151125
  Serious: No
  Sender: FDA-Public Use
  Company Number: US-BIOGENIDEC-2015BI091812

PATIENT
  Age: 52 Year
  Sex: Female
  Weight: 52 kg

DRUGS (5)
  1. ALENDRONATE [Concomitant]
     Active Substance: ALENDRONATE SODIUM
     Indication: BONE DISORDER
     Dates: start: 2004
  2. ASCORBIC ACID. [Concomitant]
     Active Substance: ASCORBIC ACID
     Indication: MULTIPLE SCLEROSIS
     Route: 048
     Dates: start: 200604
  3. CALCIUM WITH VITAMIN D [Concomitant]
     Active Substance: CALCIUM\VITAMIN D
     Indication: BONE DISORDER
     Dates: start: 2004
  4. SIMVASTATIN. [Concomitant]
     Active Substance: SIMVASTATIN
     Indication: BLOOD CHOLESTEROL
     Route: 048
     Dates: start: 2004
  5. AVONEX [Suspect]
     Active Substance: INTERFERON BETA-1A
     Indication: MULTIPLE SCLEROSIS
     Route: 030
     Dates: start: 20060210, end: 200607

REACTIONS (12)
  - Decreased appetite [Unknown]
  - Vomiting [Unknown]
  - Myalgia [Unknown]
  - Headache [Unknown]
  - Depression [Unknown]
  - Asthenia [Unknown]
  - Weight decreased [Unknown]
  - Dysgeusia [Unknown]
  - Nausea [Unknown]
  - Chills [Unknown]
  - Alopecia [Unknown]
  - Pyrexia [Unknown]
